FAERS Safety Report 8313583-6 (Version None)
Quarter: 2012Q2

REPORT INFORMATION
  Report Type: 
  Country: None (occurrence: None)
  Receive Date: 20120425
  Receipt Date: 20120425
  Transmission Date: 20120825
  Serious: Yes (Life-Threatening, Disabling)
  Sender: FDA-Public Use
  Company Number: None

PATIENT
  Sex: Male
  Weight: 170 kg

DRUGS (1)
  1. CRESTOR [Suspect]
     Dosage: 10 MG 1/2 TABLET DAILY
     Dates: start: 20080101, end: 20120101

REACTIONS (6)
  - MUSCLE DISORDER [None]
  - ASTHENIA [None]
  - FATIGUE [None]
  - CHROMATURIA [None]
  - ABDOMINAL PAIN [None]
  - MYALGIA [None]
